FAERS Safety Report 14255427 (Version 1)
Quarter: 2017Q4

REPORT INFORMATION
  Report Type: Spontaneous
  Country: JP (occurrence: JP)
  Receive Date: 20171206
  Receipt Date: 20171206
  Transmission Date: 20180321
  Serious: Yes (Death, Hospitalization, Other)
  Sender: FDA-Public Use
  Company Number: JP-GLAXOSMITHKLINE-JP2017GSK186499

PATIENT

DRUGS (2)
  1. CYCLOSPORINE. [Suspect]
     Active Substance: CYCLOSPORINE
     Indication: HISTIOCYTOSIS HAEMATOPHAGIC
  2. ACYCLOVIR. [Suspect]
     Active Substance: ACYCLOVIR
     Indication: HISTIOCYTOSIS HAEMATOPHAGIC

REACTIONS (2)
  - Drug ineffective [Unknown]
  - Multiple organ dysfunction syndrome [Fatal]
